FAERS Safety Report 21010478 (Version 1)
Quarter: 2022Q2

REPORT INFORMATION
  Report Type: Other
  Country: US (occurrence: None)
  Receive Date: 20220627
  Receipt Date: 20220627
  Transmission Date: 20220721
  Serious: Yes (Hospitalization, Other)
  Sender: FDA-Public Use
  Company Number: US-ROCHE-3119325

PATIENT
  Age: 66 Year
  Sex: Female
  Weight: 35.866 kg

DRUGS (13)
  1. OCREVUS [Suspect]
     Active Substance: OCRELIZUMAB
     Indication: Primary progressive multiple sclerosis
     Dosage: ONGOING YES
     Route: 042
     Dates: start: 201711
  2. TIZANIDINE [Concomitant]
     Active Substance: TIZANIDINE
  3. RAPAFLO [Concomitant]
     Active Substance: SILODOSIN
  4. DULOXETINE [Concomitant]
     Active Substance: DULOXETINE
  5. LISINOPRIL [Concomitant]
     Active Substance: LISINOPRIL
  6. ZYRTEC [Concomitant]
     Active Substance: CETIRIZINE HYDROCHLORIDE
  7. THERACRAN [Concomitant]
  8. VITAMIN B12 [Concomitant]
     Active Substance: CYANOCOBALAMIN
  9. VITAMIN D3 [Concomitant]
     Active Substance: CHOLECALCIFEROL
  10. FOLIC ACID [Concomitant]
     Active Substance: FOLIC ACID
  11. ASPIRIN [Concomitant]
     Active Substance: ASPIRIN
  12. HIPREX (UNITED STATES) [Concomitant]
  13. BENADRYL [Concomitant]
     Active Substance: DIPHENHYDRAMINE HYDROCHLORIDE

REACTIONS (6)
  - Fall [Recovered/Resolved]
  - Weight decreased [Not Recovered/Not Resolved]
  - Atypical pneumonia [Recovered/Resolved]
  - Bronchitis [Recovered/Resolved]
  - Urinary tract infection [Recovered/Resolved]
  - Pneumonia [Not Recovered/Not Resolved]

NARRATIVE: CASE EVENT DATE: 20220302
